FAERS Safety Report 6274090-8 (Version None)
Quarter: 2009Q3

REPORT INFORMATION
  Report Type: 
  Country: None (occurrence: None)
  Receive Date: 20090720
  Receipt Date: 20090708
  Transmission Date: 20100115
  Serious: Yes (Other)
  Sender: FDA-Public Use
  Company Number: PHHY2009IE16565

PATIENT
  Age: 75 Year
  Sex: Female

DRUGS (4)
  1. DIOVAN HCT [Suspect]
     Indication: HYPERTENSION
     Dosage: UNK
     Dates: start: 20090323, end: 20090428
  2. DIOVAN [Suspect]
  3. NEBILET [Concomitant]
     Dosage: 5 MG, QD
  4. WARFARIN SODIUM [Concomitant]

REACTIONS (3)
  - BLOOD SODIUM DECREASED [None]
  - GLAUCOMA [None]
  - VISUAL IMPAIRMENT [None]
